FAERS Safety Report 6930326-9 (Version None)
Quarter: 2010Q3

REPORT INFORMATION
  Report Type: 
  Country: None (occurrence: None)
  Receive Date: 20100818
  Receipt Date: 20100811
  Transmission Date: 20110219
  Serious: Yes (Hospitalization)
  Sender: FDA-Public Use
  Company Number: JP-ASTRAZENECA-2009SE02101

PATIENT
  Age: 52 Year
  Sex: Female
  Weight: 49 kg

DRUGS (1)
  1. IRESSA [Suspect]
     Indication: NON-SMALL CELL LUNG CANCER
     Route: 048
     Dates: start: 20070701

REACTIONS (2)
  - DERMATITIS ACNEIFORM [None]
  - HENOCH-SCHONLEIN PURPURA [None]
